FAERS Safety Report 5072638-2 (Version None)
Quarter: 2006Q3

REPORT INFORMATION
  Report Type: 
  Country: None (occurrence: None)
  Receive Date: 20060807
  Receipt Date: 20060710
  Transmission Date: 20061208
  Serious: Yes (Life-Threatening, Hospitalization)
  Sender: FDA-Public Use
  Company Number: FR-GLAXOSMITHKLINE-B0430384A

PATIENT
  Age: 91 Year
  Sex: Female

DRUGS (12)
  1. CLAMOXYL [Suspect]
     Dosage: 1G THREE TIMES PER DAY
     Route: 048
     Dates: start: 20060613, end: 20060619
  2. ACENOCOUMAROL [Suspect]
     Dosage: 1TAB SEE DOSAGE TEXT
     Route: 048
     Dates: end: 20060619
  3. DEROXAT [Concomitant]
     Dosage: 20MG SEE DOSAGE TEXT
     Route: 048
     Dates: end: 20060619
  4. OXEOL [Concomitant]
     Dosage: 1UNIT PER DAY
     Route: 048
     Dates: end: 20060619
  5. DOLIPRANE [Concomitant]
     Dosage: 6UNIT PER DAY
     Route: 048
     Dates: end: 20060619
  6. HEMIGOXINE NATIVELLE [Concomitant]
     Dosage: .0625MG ALTERNATE DAYS
     Route: 048
     Dates: end: 20060619
  7. PANTOPRAZOLE SODIUM [Concomitant]
     Dosage: 40MG PER DAY
     Route: 048
     Dates: end: 20060619
  8. TEMESTA [Concomitant]
     Route: 065
  9. TRIATEC [Concomitant]
     Route: 065
  10. DIFFU K [Concomitant]
     Route: 065
     Dates: end: 20060619
  11. LASILIX [Concomitant]
     Dosage: 500MG PER DAY
     Route: 048
  12. LASILIX [Concomitant]
     Dosage: 2INJ PER DAY
     Route: 065
     Dates: start: 20060620, end: 20060623

REACTIONS (3)
  - DRUG INTERACTION [None]
  - INTERNATIONAL NORMALISED RATIO INCREASED [None]
  - THROMBOCYTOPENIA [None]
